FAERS Safety Report 8487644-5 (Version None)
Quarter: 2012Q3

REPORT INFORMATION
  Report Type: 
  Country: None (occurrence: None)
  Receive Date: 20120705
  Receipt Date: 20120628
  Transmission Date: 20120928
  Serious: No
  Sender: FDA-Public Use
  Company Number: US-BAYER-2012-064365

PATIENT
  Sex: Female

DRUGS (2)
  1. MIRENA [Suspect]
     Indication: CONTRACEPTION
     Dosage: 20 MCG/24HR, CONT
     Route: 015
     Dates: start: 20070901, end: 20120628
  2. MENEST [Concomitant]
     Dosage: UNK
     Dates: start: 20111201

REACTIONS (6)
  - MENSTRUATION IRREGULAR [None]
  - MIGRAINE [None]
  - HOT FLUSH [None]
  - AMENORRHOEA [None]
  - BLOOD FOLLICLE STIMULATING HORMONE INCREASED [None]
  - HYPERHIDROSIS [None]
